FAERS Safety Report 19225410 (Version 2)
Quarter: 2021Q2

REPORT INFORMATION
  Report Type: Report from Study
  Country: CO (occurrence: CO)
  Receive Date: 20210505
  Receipt Date: 20210513
  Transmission Date: 20210717
  Serious: Yes (Hospitalization)
  Sender: FDA-Public Use
  Company Number: CO-BRISTOL-MYERS SQUIBB COMPANY-BMS-2021-009175

PATIENT
  Age: 55 Year
  Sex: Female
  Weight: 52 kg

DRUGS (3)
  1. NIVOLUMAB [Suspect]
     Active Substance: NIVOLUMAB
     Dosage: 52 MILLIGRAM (EVERY 15 DAYS)
     Route: 042
     Dates: start: 20201015
  2. NIVOLUMAB [Suspect]
     Active Substance: NIVOLUMAB
     Indication: MALIGNANT MELANOMA
     Dosage: 52 MILLIGRAM, Q3WK
     Route: 042
     Dates: start: 20201015, end: 20201230
  3. YERVOY [Suspect]
     Active Substance: IPILIMUMAB
     Indication: MALIGNANT MELANOMA
     Dosage: 156 MILLIGRAM, Q3WK
     Route: 042
     Dates: start: 20201015, end: 20201230

REACTIONS (4)
  - Headache [Recovering/Resolving]
  - Off label use [Unknown]
  - Urinary tract infection [Recovering/Resolving]
  - Catheter site haemorrhage [Recovering/Resolving]

NARRATIVE: CASE EVENT DATE: 20210125
